FAERS Safety Report 8282168-2 (Version None)
Quarter: 2012Q2

REPORT INFORMATION
  Report Type: 
  Country: None (occurrence: None)
  Receive Date: 20120413
  Receipt Date: 20120409
  Transmission Date: 20120825
  Serious: Yes (Other)
  Sender: FDA-Public Use
  Company Number: PHHY2011US55694

PATIENT
  Sex: Female
  Weight: 71.655 kg

DRUGS (20)
  1. CYMBALTA [Concomitant]
     Dosage: 20 MG, UNK
  2. BENAZEPLUS [Concomitant]
     Dosage: 5-6.25 UKN, UNK
  3. LOTENSIN [Concomitant]
     Dosage: 5 MG, QD
  4. LYRICA [Concomitant]
     Dosage: 50 MG, UNK
  5. CYANOCOBALAMIN [Concomitant]
  6. ESTRADIOL [Concomitant]
  7. COREG [Concomitant]
     Dosage: 20 MG, BID
  8. COREG [Concomitant]
     Dosage: 10 MG, UNK
  9. NEXIUM [Concomitant]
     Dosage: 20 MG, UNK
  10. GILENYA [Suspect]
     Indication: MULTIPLE SCLEROSIS
     Dosage: 0.5 MG, QD
     Route: 048
     Dates: start: 20110609
  11. GLUCOPHAGE [Concomitant]
     Dosage: 500 MG, UNK
  12. SYNTHROID [Concomitant]
     Dosage: 25 MG, UNK
  13. LYRICA [Concomitant]
     Dosage: 100 MG, TID
  14. SYNTHROID [Concomitant]
     Dosage: 25 UG, UNK
  15. ULTRACET [Concomitant]
     Dosage: 37.5-325 UKN, PRN
  16. CYMBALTA [Concomitant]
     Dosage: 30 MG, QHS
  17. ZOCOR [Concomitant]
     Dosage: 20 MG, UNK
  18. ALPHA LIPOIC ACID [Concomitant]
     Dosage: 600 MG, TID
  19. ROBAXIN [Concomitant]
     Dosage: 500 MG, UNK
  20. CALCIUM CARBONATE [Concomitant]
     Dosage: 500 DF, UNK

REACTIONS (15)
  - PAIN IN EXTREMITY [None]
  - BACK PAIN [None]
  - HEADACHE [None]
  - DIZZINESS [None]
  - FALL [None]
  - TINEA INFECTION [None]
  - LYMPHADENOPATHY [None]
  - HAEMANGIOMA OF LIVER [None]
  - MUSCULAR WEAKNESS [None]
  - OEDEMA PERIPHERAL [None]
  - NAUSEA [None]
  - DYSGEUSIA [None]
  - DIARRHOEA [None]
  - HYPERCHLORHYDRIA [None]
  - NASAL CONGESTION [None]
